FAERS Safety Report 9375791 (Version 1)
Quarter: 2013Q2

REPORT INFORMATION
  Report Type: Spontaneous
  Country: US (occurrence: US)
  Receive Date: 20130628
  Receipt Date: 20130628
  Transmission Date: 20140414
  Serious: No
  Sender: FDA-Public Use
  Company Number: US-US-EMD SERONO, INC.-7002418

PATIENT
  Age: 62 Year
  Sex: Female

DRUGS (2)
  1. REBIF [Suspect]
     Indication: PRODUCT USED FOR UNKNOWN INDICATION
     Route: 058
     Dates: start: 20100407
  2. REBIF [Suspect]
     Route: 058
     Dates: start: 20100628

REACTIONS (3)
  - Dermatitis contact [Recovered/Resolved]
  - Epistaxis [Unknown]
  - Influenza like illness [Unknown]
